FAERS Safety Report 4437447-3 (Version None)
Quarter: 2004Q3

REPORT INFORMATION
  Report Type: 
  Country: None (occurrence: None)
  Receive Date: 20040830
  Receipt Date: 20040812
  Transmission Date: 20050211
  Serious: Yes (Other)
  Sender: FDA-Public Use
  Company Number: GB-MERCK-0408GBR00128

PATIENT
  Age: 65 Year
  Sex: Male
  Weight: 91 kg

DRUGS (5)
  1. ASPIRIN [Concomitant]
     Indication: HYPERTENSION
     Route: 048
  2. ZETIA [Suspect]
     Route: 048
     Dates: start: 20040401, end: 20040727
  3. LISINOPRIL [Concomitant]
     Indication: HYPERTENSION
     Route: 048
  4. PHENYTOIN [Concomitant]
     Indication: EPILEPSY
     Route: 048
     Dates: start: 20021130
  5. ROSUVASTATIN CALCIUM [Concomitant]
     Indication: BLOOD CHOLESTEROL INCREASED
     Route: 048
     Dates: start: 20030812

REACTIONS (4)
  - ANTICONVULSANT DRUG LEVEL DECREASED [None]
  - CONVULSION [None]
  - DISEASE RECURRENCE [None]
  - EPILEPSY [None]
